FAERS Safety Report 21407964 (Version 1)
Quarter: 2022Q4

REPORT INFORMATION
  Report Type: Spontaneous
  Country: US (occurrence: None)
  Receive Date: 20221004
  Receipt Date: 20221004
  Transmission Date: 20230113
  Serious: Yes (Hospitalization)
  Sender: FDA-Public Use
  Company Number: None

PATIENT
  Age: 88 Year
  Sex: Male
  Weight: 88.9 kg

DRUGS (1)
  1. IMBRUVICA [Suspect]
     Active Substance: IBRUTINIB
     Dosage: 420 MG DAILY ORAL?
     Route: 048

REACTIONS (7)
  - Confusional state [None]
  - Decreased appetite [None]
  - Asthenia [None]
  - Vomiting [None]
  - Headache [None]
  - Subdural haematoma [None]
  - Metabolic encephalopathy [None]

NARRATIVE: CASE EVENT DATE: 20221003
